APPROVED DRUG PRODUCT: BUPROPION HYDROCHLORIDE
Active Ingredient: BUPROPION HYDROCHLORIDE
Strength: 75MG
Dosage Form/Route: TABLET;ORAL
Application: A075584 | Product #001 | TE Code: AB
Applicant: APNAR PHARMA LP
Approved: Feb 7, 2000 | RLD: No | RS: No | Type: RX